FAERS Safety Report 4341409-4 (Version None)
Quarter: 2004Q2

REPORT INFORMATION
  Report Type: 
  Country: None (occurrence: None)
  Receive Date: 20040414
  Receipt Date: 20040331
  Transmission Date: 20050107
  Serious: Yes (Hospitalization, Disabling)
  Sender: FDA-Public Use
  Company Number: FLUV00304000915

PATIENT
  Age: 74 Year
  Sex: Male
  Weight: 65 kg

DRUGS (7)
  1. DEPROMEL 25 (FLUVOXAMINE MALEATE) [Suspect]
     Indication: DEPRESSION
     Dosage: 50 MG DAILY PO
     Route: 048
     Dates: start: 20000117, end: 20020111
  2. ARTANE [Suspect]
     Indication: PARKINSON'S DISEASE
     Dosage: 4 MG DAILY PO
     Route: 048
     Dates: start: 20020107, end: 20020113
  3. GRAMALIL (TIAPRIDE HYDROCHLORIDE) [Concomitant]
  4. ARICEPT [Concomitant]
  5. APLACE (TROXIPIDE) [Concomitant]
  6. DANTRIUM [Concomitant]
  7. NEODOPASTON (LEVODOPA) [Concomitant]

REACTIONS (13)
  - AKINESIA [None]
  - APATHY [None]
  - BLOOD CREATINE PHOSPHOKINASE INCREASED [None]
  - BODY TEMPERATURE INCREASED [None]
  - CONVULSION [None]
  - HYPERHIDROSIS [None]
  - LOSS OF CONSCIOUSNESS [None]
  - MASKED FACIES [None]
  - MUSCLE RIGIDITY [None]
  - MUSCLE TWITCHING [None]
  - MUTISM [None]
  - NEUROLEPTIC MALIGNANT SYNDROME [None]
  - TREMOR [None]
